FAERS Safety Report 19096515 (Version 2)
Quarter: 2021Q4

REPORT INFORMATION
  Report Type: Spontaneous
  Country: US (occurrence: US)
  Receive Date: 20210406
  Receipt Date: 20211001
  Transmission Date: 20220303
  Serious: Yes (Hospitalization, Other)
  Sender: FDA-Public Use
  Company Number: US-SA-SAC20210402000422

PATIENT
  Age: 61 Year
  Sex: Female

DRUGS (5)
  1. AUBAGIO [Suspect]
     Active Substance: TERIFLUNOMIDE
     Indication: Multiple sclerosis
     Dosage: 14 MG, QD
     Route: 048
     Dates: start: 2016
  2. ASPIRIN [Concomitant]
     Active Substance: ASPIRIN
  3. CARVEDILOL er [Concomitant]
  4. CELECOXIB [Concomitant]
     Active Substance: CELECOXIB
  5. TYLENOL [Concomitant]
     Active Substance: ACETAMINOPHEN

REACTIONS (4)
  - Cerebrovascular accident [Unknown]
  - Cognitive disorder [Unknown]
  - Condition aggravated [Unknown]
  - Musculoskeletal disorder [Unknown]

NARRATIVE: CASE EVENT DATE: 20201101
